FAERS Safety Report 4591520-8 (Version None)
Quarter: 2005Q1

REPORT INFORMATION
  Report Type: 
  Country: None (occurrence: None)
  Receive Date: 20050223
  Receipt Date: 20050223
  Transmission Date: 20050727
  Serious: Yes (Death, Hospitalization)
  Sender: FDA-Public Use
  Company Number: None

PATIENT
  Age: 83 Year
  Sex: Female
  Weight: 68.0396 kg

DRUGS (12)
  1. TARCEVA [Suspect]
     Indication: NON-SMALL CELL LUNG CANCER
     Dosage: 150 MG  QD  ORAL
     Route: 048
     Dates: start: 20050120, end: 20050203
  2. TARCEVA [Suspect]
     Indication: NON-SMALL CELL LUNG CANCER
     Dosage: 200 MG   QD   ORAL
     Route: 048
     Dates: start: 20050203, end: 20050219
  3. COMBIVENT [Concomitant]
  4. GABAPENTIN [Concomitant]
  5. PERCOCET [Concomitant]
  6. AMIODARONE HYDROCHLORIDE [Concomitant]
  7. SENOKOT [Concomitant]
  8. SYNTHROID [Concomitant]
  9. FOSINOPRIL [Concomitant]
  10. AMBIEN [Concomitant]
  11. IMDUR [Concomitant]
  12. LASIX [Concomitant]

REACTIONS (3)
  - ARRHYTHMIA [None]
  - COMA [None]
  - PULMONARY EMBOLISM [None]
